FAERS Safety Report 10738419 (Version 1)
Quarter: 2015Q1

REPORT INFORMATION
  Report Type: Spontaneous
  Country: US (occurrence: US)
  Receive Date: 20150126
  Receipt Date: 20150126
  Transmission Date: 20150721
  Serious: Yes (Other)
  Sender: FDA-Public Use
  Company Number: US-PFIZER INC-2015032005

PATIENT

DRUGS (1)
  1. SKELAXIN [Suspect]
     Active Substance: METAXALONE
     Indication: MUSCLE STRAIN
     Dosage: AS NEEDED
     Route: 048
     Dates: end: 201101

REACTIONS (4)
  - Anaphylactic reaction [Unknown]
  - Pharyngeal oedema [Unknown]
  - Pruritus [Unknown]
  - Rash [Unknown]
